FAERS Safety Report 10936698 (Version 2)
Quarter: 2015Q1

REPORT INFORMATION
  Report Type: Spontaneous
  Country: US (occurrence: None)
  Receive Date: 20150212
  Receipt Date: 20150212
  Transmission Date: 20150721
  Serious: No
  Sender: FDA-Public Use
  Company Number: TPA2011A00452

PATIENT
  Age: 81 Year
  Sex: Female
  Weight: 58.51 kg

DRUGS (8)
  1. ATENOLOL. [Concomitant]
     Active Substance: ATENOLOL
  2. CLONIDINE. [Concomitant]
     Active Substance: CLONIDINE
  3. ALLOPURINOL. [Concomitant]
     Active Substance: ALLOPURINOL
  4. ULORIC [Suspect]
     Active Substance: FEBUXOSTAT
     Indication: GOUTY TOPHUS
     Route: 048
     Dates: start: 20101206, end: 201012
  5. ULORIC [Suspect]
     Active Substance: FEBUXOSTAT
     Indication: CHRONIC KIDNEY DISEASE
     Route: 048
     Dates: start: 20101206, end: 201012
  6. LISINOPRIL. [Concomitant]
     Active Substance: LISINOPRIL
  7. CITALOPRAM [Concomitant]
     Active Substance: CITALOPRAM HYDROBROMIDE
  8. SIMVASTATIN. [Concomitant]
     Active Substance: SIMVASTATIN

REACTIONS (5)
  - Skin exfoliation [None]
  - Erythema [None]
  - Oedema peripheral [None]
  - Pruritus [None]
  - Gait disturbance [None]
